FAERS Safety Report 25119615 (Version 1)
Quarter: 2025Q1

REPORT INFORMATION
  Report Type: Report from Study
  Country: US (occurrence: US)
  Receive Date: 20250325
  Receipt Date: 20250325
  Transmission Date: 20250409
  Serious: Yes (Other)
  Sender: ROCHE
  Company Number: US-ROCHE-10000235514

PATIENT
  Sex: Female

DRUGS (2)
  1. CELLCEPT [Suspect]
     Active Substance: MYCOPHENOLATE MOFETIL
     Indication: Lupus nephritis
     Route: 065
  2. RITUXAN [Suspect]
     Active Substance: RITUXIMAB
     Indication: Lupus nephritis
     Route: 065

REACTIONS (4)
  - Off label use [Unknown]
  - Coma [Unknown]
  - Amnesia [Unknown]
  - Pain [Unknown]
